FAERS Safety Report 12844979 (Version 3)
Quarter: 2016Q4

REPORT INFORMATION
  Report Type: Report from Study
  Country: GB (occurrence: GB)
  Receive Date: 20161013
  Receipt Date: 20161104
  Transmission Date: 20170207
  Serious: Yes (Hospitalization)
  Sender: FDA-Public Use
  Company Number: GB-B.I. PHARMACEUTICALS,INC./RIDGEFIELD-2016-BI-15312BI

PATIENT
  Age: 59 Year
  Sex: Male
  Weight: 97.3 kg

DRUGS (13)
  1. AMLODIPINE [Concomitant]
     Active Substance: AMLODIPINE BESYLATE
     Indication: HYPERTENSION
     Route: 048
  2. ALFACALCIDOL [Concomitant]
     Active Substance: ALFACALCIDOL
     Indication: CHRONIC KIDNEY DISEASE
     Route: 048
     Dates: end: 20160310
  3. BLINDED LINAGLIPTIN [Suspect]
     Active Substance: LINAGLIPTIN
     Indication: TYPE 2 DIABETES MELLITUS
     Route: 048
     Dates: start: 20150414
  4. SODIUM BICARBONATE. [Concomitant]
     Active Substance: SODIUM BICARBONATE
     Indication: CHRONIC KIDNEY DISEASE
     Route: 048
  5. PREGABALIN. [Concomitant]
     Active Substance: PREGABALIN
     Indication: NEUROPATHY PERIPHERAL
     Route: 048
     Dates: start: 20150618
  6. HUMULIN M3 [Concomitant]
     Active Substance: INSULIN HUMAN
     Indication: TYPE 2 DIABETES MELLITUS
     Route: 058
  7. FLUCLOXACILLIN [Concomitant]
     Active Substance: FLUCLOXACILLIN
     Indication: CELLULITIS
     Route: 048
  8. CALCIUM ACETATE. [Concomitant]
     Active Substance: CALCIUM ACETATE
     Indication: PRODUCT USED FOR UNKNOWN INDICATION
     Route: 048
  9. SEVELAMER [Concomitant]
     Active Substance: SEVELAMER
     Indication: CHRONIC KIDNEY DISEASE
     Route: 048
     Dates: start: 201603
  10. PREGABALIN. [Concomitant]
     Active Substance: PREGABALIN
     Route: 048
     Dates: start: 20150618
  11. ALFACALCIDOL [Concomitant]
     Active Substance: ALFACALCIDOL
     Route: 048
  12. QUININE SULPHATE [Concomitant]
     Active Substance: QUININE SULFATE
     Indication: PRODUCT USED FOR UNKNOWN INDICATION
     Route: 065
  13. TESTOSTERONE. [Concomitant]
     Active Substance: TESTOSTERONE
     Indication: KLINEFELTER^S SYNDROME
     Route: 048

REACTIONS (7)
  - Urinary tract infection [Not Recovered/Not Resolved]
  - Glomerular filtration rate decreased [Unknown]
  - Glomerular filtration rate decreased [Unknown]
  - Acute kidney injury [Not Recovered/Not Resolved]
  - Glomerular filtration rate decreased [Unknown]
  - Rectal haemorrhage [Recovered/Resolved]
  - Urinary tract infection [Not Recovered/Not Resolved]

NARRATIVE: CASE EVENT DATE: 20151222
